FAERS Safety Report 4336038-2 (Version None)
Quarter: 2004Q2

REPORT INFORMATION
  Report Type: 
  Country: None (occurrence: None)
  Receive Date: 20040406
  Receipt Date: 20040330
  Transmission Date: 20050107
  Serious: Yes (Hospitalization, Other)
  Sender: FDA-Public Use
  Company Number: 2004203004PR

PATIENT
  Age: 78 Year
  Sex: Female
  Weight: 60.8 kg

DRUGS (5)
  1. CELEBREX [Suspect]
     Indication: ARTHRALGIA
  2. BEXTRA [Suspect]
     Indication: ARTHRALGIA
     Dates: end: 20021120
  3. PLAVIX [Concomitant]
  4. ASPIRIN [Concomitant]
  5. PERSANTIN INJ [Concomitant]

REACTIONS (3)
  - BLOOD DISORDER [None]
  - HAEMOGLOBIN DECREASED [None]
  - HAEMORRHAGE [None]
